FAERS Safety Report 8766255 (Version 2)
Quarter: 2012Q4

REPORT INFORMATION
  Report Type: 
  Country: US (occurrence: US)
  Receive Date: 20120904
  Receipt Date: 20121023
  Transmission Date: 20130627
  Serious: No
  Sender: FDA-Public Use
  Company Number: US-009507513-1207USA011632

PATIENT
  Sex: Female

DRUGS (2)
  1. NEXPLANON [Suspect]
     Indication: CONTRACEPTION
     Dosage: three years implant
     Dates: start: 20120718, end: 201207
  2. NEXPLANON [Suspect]
     Dosage: three year implant
     Dates: start: 20120720

REACTIONS (4)
  - Complication of device insertion [Unknown]
  - Device expulsion [Unknown]
  - Device expulsion [Unknown]
  - No adverse event [Unknown]
